FAERS Safety Report 23673610 (Version 1)
Quarter: 2024Q1

REPORT INFORMATION
  Report Type: Spontaneous
  Country: US (occurrence: None)
  Receive Date: 20240326
  Receipt Date: 20240326
  Transmission Date: 20240410
  Serious: No
  Sender: FDA-Public Use
  Company Number: None

PATIENT
  Age: 45 Year
  Sex: Male

DRUGS (1)
  1. ADBRY [Suspect]
     Active Substance: TRALOKINUMAB-LDRM
     Indication: Dermatitis atopic
     Dosage: OTHER QUANTITY : 600MG (4 SPRINGES);?FREQUENCY : AS DIRECTED;?
     Route: 058
     Dates: start: 202308

REACTIONS (4)
  - Eye infection [None]
  - Dry skin [None]
  - Fungal infection [None]
  - Product use issue [None]
